FAERS Safety Report 10254051 (Version 1)
Quarter: 2014Q2

REPORT INFORMATION
  Report Type: Report from Study
  Country: US (occurrence: US)
  Receive Date: 20140623
  Receipt Date: 20140623
  Transmission Date: 20141212
  Serious: Yes (Other)
  Sender: FDA-Public Use
  Company Number: US-GILEAD-2014-0106293

PATIENT
  Sex: Female

DRUGS (2)
  1. RANOLAZINE [Suspect]
     Indication: ANGINA PECTORIS
     Dosage: 1000 MG, UNK
     Route: 065
  2. RANOLAZINE [Suspect]
     Dosage: 500 MG, BID
     Route: 065

REACTIONS (4)
  - Myocardial infarction [Unknown]
  - Cardiac operation [Unknown]
  - Memory impairment [Unknown]
  - Wrong technique in drug usage process [Unknown]
